FAERS Safety Report 9518290 (Version 1)
Quarter: 2013Q3

REPORT INFORMATION
  Report Type: Spontaneous
  Country: US (occurrence: US)
  Receive Date: 20130912
  Receipt Date: 20130912
  Transmission Date: 20140515
  Serious: No
  Sender: FDA-Public Use
  Company Number: US-BAYER-2013-109418

PATIENT
  Age: 65 Year
  Sex: Male
  Weight: 90 kg

DRUGS (4)
  1. ALEVE CAPLET [Suspect]
     Dosage: 2 DF, PRN
     Route: 048
  2. ALLOPURINOL [Concomitant]
  3. AMLODIPINE [Concomitant]
  4. BABY ASPIRIN [Concomitant]

REACTIONS (1)
  - Blood glucose increased [None]
